FAERS Safety Report 4622473-1 (Version None)
Quarter: 2005Q1

REPORT INFORMATION
  Report Type: 
  Country: None (occurrence: None)
  Receive Date: 20050330
  Receipt Date: 20050322
  Transmission Date: 20050727
  Serious: Yes (Hospitalization)
  Sender: FDA-Public Use
  Company Number: 200512660GDDC

PATIENT
  Age: 37 Year
  Sex: Female

DRUGS (13)
  1. GAVISCON [Suspect]
     Indication: DYSPEPSIA
     Dosage: DOSE: AS REQUIRED
     Route: 048
  2. TAGAMET [Suspect]
     Indication: DYSPEPSIA
     Dosage: DOSE: AS REQUIRED
     Route: 048
  3. RANITIDINE HYDROCHLORIDE [Concomitant]
     Dosage: DOSE: UNK
  4. METOCLOPRAMIDE [Concomitant]
     Dosage: DOSE: UNK
  5. SUMATRIPTAN [Concomitant]
     Dosage: DOSE: UNK
  6. OXYCODONE HCL [Concomitant]
     Dosage: DOSE: UNK
  7. NABUMETONE [Concomitant]
     Dosage: DOSE: UNK
  8. CARBAMAZEPINE [Concomitant]
     Dosage: DOSE: UNK
  9. FLUOXETINE HCL [Concomitant]
     Dosage: DOSE: UNK
  10. ALPRAZOLAM [Concomitant]
     Dosage: DOSE: UNK
  11. PROMETHAZINE HCL [Concomitant]
     Dosage: DOSE: UNK
  12. ONDANSETRON HYDROCHLORIDE [Concomitant]
     Dosage: DOSE: UNK
  13. DRONABINOL [Concomitant]
     Dosage: DOSE: UNK

REACTIONS (8)
  - CONDITION AGGRAVATED [None]
  - DYSGEUSIA [None]
  - GASTROOESOPHAGEAL REFLUX DISEASE [None]
  - IMPAIRED GASTRIC EMPTYING [None]
  - PHARMACEUTICAL PRODUCT COMPLAINT [None]
  - POST PROCEDURAL COMPLICATION [None]
  - THERAPY NON-RESPONDER [None]
  - URINARY RETENTION [None]
